FAERS Safety Report 9294952 (Version 1)
Quarter: 2013Q2

REPORT INFORMATION
  Report Type: Spontaneous
  Country: US (occurrence: None)
  Receive Date: 20130516
  Receipt Date: 20130516
  Transmission Date: 20140414
  Serious: Yes (Life-Threatening)
  Sender: FDA-Public Use
  Company Number: None

PATIENT
  Age: 13 Year
  Sex: Female
  Weight: 52.16 kg

DRUGS (2)
  1. CETIRIZINE [Suspect]
     Indication: HYPERSENSITIVITY
     Route: 048
     Dates: start: 20121215, end: 20121217
  2. MONTELUKAST [Suspect]
     Indication: HYPERSENSITIVITY
     Route: 048
     Dates: start: 20121215, end: 20121217

REACTIONS (3)
  - Reaction to drug excipients [None]
  - Lip swelling [None]
  - Product label issue [None]
